FAERS Safety Report 10779496 (Version 1)
Quarter: 2015Q1

REPORT INFORMATION
  Report Type: Spontaneous
  Country: DE (occurrence: DE)
  Receive Date: 20150210
  Receipt Date: 20150210
  Transmission Date: 20150721
  Serious: Yes (Other)
  Sender: FDA-Public Use
  Company Number: DE-DRREDDYS-GER/GER/15/0045842

PATIENT
  Age: 74 Year
  Sex: Male

DRUGS (9)
  1. OLANZAPINE. [Suspect]
     Active Substance: OLANZAPINE
  2. CLOZAPINE. [Suspect]
     Active Substance: CLOZAPINE
     Indication: DELUSIONAL DISORDER, PERSECUTORY TYPE
  3. ARIPIPRAZOLE. [Suspect]
     Active Substance: ARIPIPRAZOLE
     Indication: DELUSIONAL DISORDER, PERSECUTORY TYPE
  4. QUETIAPINE [Suspect]
     Active Substance: QUETIAPINE
     Indication: DELUSIONAL DISORDER, PERSECUTORY TYPE
  5. RISPERIDONE. [Suspect]
     Active Substance: RISPERIDONE
     Indication: DELUSIONAL DISORDER, PERSECUTORY TYPE
  6. CLOZAPINE. [Suspect]
     Active Substance: CLOZAPINE
  7. OLANZAPINE. [Suspect]
     Active Substance: OLANZAPINE
     Indication: DELUSIONAL DISORDER, PERSECUTORY TYPE
  8. CLOZAPINE. [Suspect]
     Active Substance: CLOZAPINE
  9. OLANZAPINE. [Suspect]
     Active Substance: OLANZAPINE

REACTIONS (6)
  - Oedema peripheral [Unknown]
  - General physical health deterioration [Unknown]
  - Fatigue [Unknown]
  - Drug ineffective [Unknown]
  - Visual impairment [Unknown]
  - Action tremor [Unknown]
